FAERS Safety Report 10759872 (Version 1)
Quarter: 2015Q1

REPORT INFORMATION
  Report Type: Other
  Country: FR (occurrence: FR)
  Receive Date: 20150203
  Receipt Date: 20150203
  Transmission Date: 20150721
  Serious: Yes (Hospitalization)
  Sender: FDA-Public Use
  Company Number: FR-MYLANLABS-2015M1002520

PATIENT
  Age: 76 Year
  Sex: Female

DRUGS (3)
  1. TAZOCILLINE [Suspect]
     Active Substance: PIPERACILLIN SODIUM\TAZOBACTAM SODIUM
     Indication: ERYSIPELAS
     Dosage: 4 G, TID
     Route: 042
     Dates: start: 20141107, end: 20141201
  2. ZYVOXID [Suspect]
     Active Substance: LINEZOLID
     Indication: ERYSIPELAS
     Dosage: 600 MG, BID
     Route: 048
     Dates: start: 20141126, end: 20141130
  3. VANCOMYCIN [Suspect]
     Active Substance: VANCOMYCIN
     Indication: ERYSIPELAS
     Dosage: 3 G, QD
     Route: 042
     Dates: start: 20141112, end: 20141125

REACTIONS (4)
  - Toxic skin eruption [Recovered/Resolved]
  - Eosinophilia [Recovered/Resolved]
  - Liver disorder [Recovered/Resolved]
  - Drug reaction with eosinophilia and systemic symptoms [Recovered/Resolved]

NARRATIVE: CASE EVENT DATE: 20141129
